FAERS Safety Report 21753576 (Version 2)
Quarter: 2024Q1

REPORT INFORMATION
  Report Type: Spontaneous
  Country: DE (occurrence: DE)
  Receive Date: 20221220
  Receipt Date: 20240214
  Transmission Date: 20240410
  Serious: Yes (Other)
  Sender: FDA-Public Use
  Company Number: DE-EMBRYOTOX-202207694

PATIENT
  Age: 37 Year
  Sex: Female
  Weight: 62 kg

DRUGS (2)
  1. CARBAMAZEPINE [Suspect]
     Active Substance: CARBAMAZEPINE
     Indication: Epilepsy
     Dosage: 600 MG, QD (600 [MG/D ] 3 SEPARATED DOSES)
     Route: 048
     Dates: start: 20211022, end: 20220215
  2. LEVOTHYROXINE SODIUM [Concomitant]
     Active Substance: LEVOTHYROXINE SODIUM
     Indication: Autoimmune thyroiditis
     Dosage: 150 UG, QD (BIS 125)
     Route: 048
     Dates: start: 20211022, end: 20220215

REACTIONS (2)
  - Abortion missed [Recovered/Resolved]
  - Exposure during pregnancy [Unknown]
